FAERS Safety Report 8688333 (Version 2)
Quarter: 2013Q4

REPORT INFORMATION
  Report Type: Spontaneous
  Country: US (occurrence: US)
  Receive Date: 20120727
  Receipt Date: 20131031
  Transmission Date: 20140711
  Serious: No
  Sender: FDA-Public Use
  Company Number: US-009507513-2012SP023970

PATIENT
  Age: 56 Year
  Sex: Male
  Weight: 104.33 kg

DRUGS (3)
  1. CLARITIN [Suspect]
     Indication: UPPER RESPIRATORY TRACT CONGESTION
     Dosage: 10 MG, QAM
     Route: 048
     Dates: start: 20120416, end: 20120420
  2. CLARITIN [Suspect]
     Indication: RHINORRHOEA
  3. CLARITIN [Suspect]
     Indication: MEDICAL OBSERVATION

REACTIONS (3)
  - No therapeutic response [Recovered/Resolved]
  - Expired drug administered [Recovered/Resolved]
  - Drug effect decreased [Recovered/Resolved]
